FAERS Safety Report 5097102-6 (Version None)
Quarter: 2006Q3

REPORT INFORMATION
  Report Type: 
  Country: None (occurrence: None)
  Receive Date: 20060906
  Receipt Date: 20060822
  Transmission Date: 20061208
  Serious: Yes (Hospitalization)
  Sender: FDA-Public Use
  Company Number: GBWYE762523AUG06

PATIENT
  Sex: Male

DRUGS (5)
  1. ENBREL [Suspect]
     Indication: DRUG USE FOR UNKNOWN INDICATION
     Route: 058
     Dates: start: 20051001, end: 20060501
  2. DIGOXIN [Concomitant]
     Dosage: UNKNOWN
  3. FOLIC ACID [Concomitant]
     Dosage: UNKNOWN
  4. SOLPADOL [Concomitant]
     Dosage: UNKNOWN
  5. OMEPRAZOLE [Concomitant]
     Dosage: UNKNOWN

REACTIONS (1)
  - ARTHRITIS BACTERIAL [None]
